FAERS Safety Report 15711013 (Version 1)
Quarter: 2018Q4

REPORT INFORMATION
  Report Type: Spontaneous
  Country: US (occurrence: US)
  Receive Date: 20181211
  Receipt Date: 20181211
  Transmission Date: 20190205
  Serious: Yes (Death, Other)
  Sender: FDA-Public Use
  Company Number: US-TAIHO ONCOLOGY  INC-EU-2018-02291

PATIENT
  Age: 42 Year
  Sex: Male

DRUGS (7)
  1. LOPERAMIDE-SIMETHICONE [Concomitant]
     Dosage: NI
  2. HEPARIN [Concomitant]
     Active Substance: HEPARIN SODIUM
     Dosage: PF
  3. TRAMADOL. [Concomitant]
     Active Substance: TRAMADOL
     Dosage: NI
  4. PROCHLORPERAZINE. [Concomitant]
     Active Substance: PROCHLORPERAZINE
     Dosage: NI
  5. METOPROLOL TARTRATE. [Concomitant]
     Active Substance: METOPROLOL TARTRATE
     Dosage: NI
  6. ONDANSETRON [Concomitant]
     Active Substance: ONDANSETRON
     Dosage: NI
  7. LONSURF [Suspect]
     Active Substance: TIPIRACIL HYDROCHLORIDE\TRIFLURIDINE
     Indication: APPENDIX CANCER
     Dosage: COMPLETED 4 CYCLES
     Route: 048
     Dates: start: 201607, end: 201610

REACTIONS (2)
  - Hypersensitivity vasculitis [Recovered/Resolved]
  - Henoch-Schonlein purpura [Recovered/Resolved]

NARRATIVE: CASE EVENT DATE: 2016
